FAERS Safety Report 5096803-3 (Version None)
Quarter: 2006Q3

REPORT INFORMATION
  Report Type: 
  Country: None (occurrence: None)
  Receive Date: 20060831
  Receipt Date: 20060818
  Transmission Date: 20061208
  Serious: Yes (Hospitalization, Other)
  Sender: FDA-Public Use
  Company Number: 2006098922

PATIENT
  Age: 18 Year
  Sex: Male

DRUGS (1)
  1. GENOTROPIN [Suspect]
     Indication: HYPOPITUITARISM
     Dosage: 5.6MG/WEEK (WEEKLY), SUBCUTANEOUS
     Route: 058
     Dates: start: 19990715

REACTIONS (3)
  - FIBROMA [None]
  - NASAL NEOPLASM [None]
  - PHARYNGEAL NEOPLASM [None]
